FAERS Safety Report 15072564 (Version 2)
Quarter: 2018Q2

REPORT INFORMATION
  Report Type: Spontaneous
  Country: US (occurrence: US)
  Receive Date: 20180627
  Receipt Date: 20180629
  Transmission Date: 20180711
  Serious: Yes (Hospitalization, Other)
  Sender: FDA-Public Use
  Company Number: US-ALLERGAN-1832418US

PATIENT
  Age: 14 Year
  Sex: Male

DRUGS (2)
  1. FLUOXETINE HCL UNK [Suspect]
     Active Substance: FLUOXETINE HYDROCHLORIDE
     Indication: DEPRESSION
     Dosage: UNK
     Route: 065
  2. ARIPIPRAZOLE. [Concomitant]
     Active Substance: ARIPIPRAZOLE
     Indication: PANIC ATTACK
     Dosage: UNK
     Route: 065

REACTIONS (2)
  - Brugada syndrome [Recovering/Resolving]
  - Off label use [Unknown]
